FAERS Safety Report 8297760-9 (Version None)
Quarter: 2012Q1

REPORT INFORMATION
  Report Type: 
  Country: None (occurrence: None)
  Receive Date: 20120323
  Receipt Date: 20101025
  Transmission Date: 20120608
  Serious: Yes (Hospitalization)
  Sender: FDA-Public Use
  Company Number: PHHY2010US69448

PATIENT
  Age: 73 Year
  Sex: Male

DRUGS (2)
  1. TOBI [Suspect]
     Indication: LUNG INFECTION
     Dosage: 300 MG, BID, INHALATION, EVERY OTHER DAY, BID
     Route: 055
     Dates: start: 20100923, end: 20101007
  2. TOBI [Suspect]
     Indication: BRONCHIECTASIS
     Dosage: 300 MG, BID, INHALATION, EVERY OTHER DAY, BID
     Route: 055
     Dates: start: 20100923, end: 20101007

REACTIONS (2)
  - DYSPNOEA [None]
  - GAIT DISTURBANCE [None]
